FAERS Safety Report 6804692-9 (Version None)
Quarter: 2010Q2

REPORT INFORMATION
  Report Type: 
  Country: None (occurrence: None)
  Receive Date: 20100628
  Receipt Date: 20070830
  Transmission Date: 20101027
  Serious: Yes (Other)
  Sender: FDA-Public Use
  Company Number: US-PFIZER INC-2007025660

PATIENT
  Sex: Female
  Weight: 51.3 kg

DRUGS (5)
  1. GEODON [Suspect]
     Indication: MOOD ALTERED
     Dates: start: 20070101, end: 20070325
  2. ESTROSTEP [Concomitant]
     Dates: start: 20050101
  3. HYDROCODONE [Concomitant]
     Dates: start: 20070318
  4. XANAX [Concomitant]
     Dates: start: 20070101
  5. EFFEXOR [Concomitant]
     Dates: start: 20070101

REACTIONS (4)
  - BLOOD PROLACTIN INCREASED [None]
  - DIZZINESS [None]
  - DRUG INEFFECTIVE [None]
  - GALACTORRHOEA [None]
